FAERS Safety Report 14279744 (Version 1)
Quarter: 2017Q4

REPORT INFORMATION
  Report Type: Spontaneous
  Country: US (occurrence: US)
  Receive Date: 20171213
  Receipt Date: 20171213
  Transmission Date: 20180321
  Serious: No
  Sender: FDA-Public Use
  Company Number: US-AUROBINDO-AUR-APL-2016-14225

PATIENT
  Sex: Female

DRUGS (2)
  1. CITALOPRAM TABLET [Suspect]
     Active Substance: CITALOPRAM HYDROBROMIDE
     Indication: PRODUCT USED FOR UNKNOWN INDICATION
     Dosage: 40 MG, UNK
     Route: 065
     Dates: start: 20160829
  2. CITALOPRAM TABLET [Suspect]
     Active Substance: CITALOPRAM HYDROBROMIDE
     Dosage: 20 MG, ONE MONTH AGO
     Route: 065

REACTIONS (7)
  - Nervousness [Unknown]
  - Thinking abnormal [Unknown]
  - Drug ineffective [Unknown]
  - Tremor [Unknown]
  - Insomnia [Unknown]
  - Abdominal discomfort [Unknown]
  - Depression [Unknown]
